FAERS Safety Report 4825140-4 (Version None)
Quarter: 2005Q4

REPORT INFORMATION
  Report Type: 
  Country: None (occurrence: None)
  Receive Date: 20051109
  Receipt Date: 20051109
  Transmission Date: 20060501
  Serious: Yes (Other)
  Sender: FDA-Public Use
  Company Number: None

PATIENT
  Age: 77 Year
  Sex: Female
  Weight: 72.5755 kg

DRUGS (9)
  1. ARICEPT [Suspect]
     Dosage: ONE DAILY @ DINNER
  2. GLUCOSAMINE-CHONGROTIN [Concomitant]
  3. VISION HEALTH VITAMIN [Concomitant]
  4. CYMBALTA [Concomitant]
  5. LOTREL [Concomitant]
  6. ETODOLAC [Concomitant]
  7. RANITIDINE [Concomitant]
  8. ZOCOR [Concomitant]
  9. ASPRIN [Concomitant]

REACTIONS (12)
  - ARTHRITIS [None]
  - ASTHENIA [None]
  - BACK PAIN [None]
  - BALANCE DISORDER [None]
  - DECREASED ACTIVITY [None]
  - HYPERHIDROSIS [None]
  - MUSCLE SPASMS [None]
  - NAUSEA [None]
  - NEURALGIA [None]
  - PAIN IN EXTREMITY [None]
  - TREATMENT NONCOMPLIANCE [None]
  - VOMITING [None]
